FAERS Safety Report 10017302 (Version 2)
Quarter: 2014Q2

REPORT INFORMATION
  Report Type: Report from Study
  Country: BE (occurrence: BE)
  Receive Date: 20140318
  Receipt Date: 20140407
  Transmission Date: 20141212
  Serious: Yes (Hospitalization)
  Sender: FDA-Public Use
  Company Number: BE-TEVA-468900USA

PATIENT
  Age: 74 Year
  Sex: Male
  Weight: 80 kg

DRUGS (3)
  1. LEVACT [Suspect]
     Route: 065
     Dates: start: 20121017, end: 20121018
  2. ASAFLOW [Concomitant]
     Indication: PROPHYLAXIS
     Route: 048
  3. EMCONCOR [Concomitant]
     Indication: HYPERTENSION
     Route: 048

REACTIONS (1)
  - Infective exacerbation of chronic obstructive airways disease [Recovered/Resolved]
